FAERS Safety Report 6193623-3 (Version None)
Quarter: 2009Q2

REPORT INFORMATION
  Report Type: 
  Country: None (occurrence: None)
  Receive Date: 20090518
  Receipt Date: 20090512
  Transmission Date: 20091009
  Serious: Yes (Life-Threatening)
  Sender: FDA-Public Use
  Company Number: NL-CELGENEUS-114-21880-09050772

PATIENT
  Sex: Male
  Weight: 88 kg

DRUGS (5)
  1. REVLIMID [Suspect]
     Indication: MULTIPLE MYELOMA
     Route: 048
     Dates: start: 20090112
  2. REVLIMID [Suspect]
     Route: 048
     Dates: start: 20090209, end: 20090211
  3. REVLIMID [Suspect]
     Route: 048
     Dates: start: 20090406, end: 20090423
  4. TOLBUTAMIDE [Concomitant]
     Indication: DIABETES MELLITUS
     Route: 048
     Dates: start: 20090101
  5. FRAXIPARINE [Concomitant]
     Indication: PROPHYLAXIS
     Route: 058
     Dates: start: 20090423, end: 20090502

REACTIONS (2)
  - PNEUMONIA [None]
  - SEPSIS [None]
